FAERS Safety Report 16694996 (Version 1)
Quarter: 2019Q3

REPORT INFORMATION
  Report Type: Report from Study
  Country: US (occurrence: US)
  Receive Date: 20190812
  Receipt Date: 20190812
  Transmission Date: 20191004
  Serious: Yes (Death, Hospitalization)
  Sender: FDA-Public Use
  Company Number: US-BAXTER-2019BAX015871

PATIENT
  Sex: Male

DRUGS (3)
  1. METOPROLOL TARTRATE INJECTION, USP [Suspect]
     Active Substance: METOPROLOL TARTRATE
     Indication: PRODUCT USED FOR UNKNOWN INDICATION
     Route: 065
  2. HYDROCHLOROTHIAZIDE. [Suspect]
     Active Substance: HYDROCHLOROTHIAZIDE
     Indication: PRODUCT USED FOR UNKNOWN INDICATION
     Route: 065
  3. DIGOXIN. [Suspect]
     Active Substance: DIGOXIN
     Indication: PRODUCT USED FOR UNKNOWN INDICATION
     Route: 065

REACTIONS (1)
  - Overdose [Fatal]
